FAERS Safety Report 14899550 (Version 1)
Quarter: 2018Q2

REPORT INFORMATION
  Report Type: Spontaneous
  Country: US (occurrence: US)
  Receive Date: 20180516
  Receipt Date: 20180516
  Transmission Date: 20180711
  Serious: No
  Sender: FDA-Public Use
  Company Number: US-TEVA-2018-US-891027

PATIENT
  Age: 65 Year
  Sex: Female
  Weight: 83 kg

DRUGS (8)
  1. ULTRAM [Concomitant]
     Active Substance: TRAMADOL HYDROCHLORIDE
     Indication: PAIN
  2. FENTANYL. [Concomitant]
     Active Substance: FENTANYL
     Indication: PAIN
  3. SYNTHROID [Concomitant]
     Active Substance: LEVOTHYROXINE SODIUM
     Indication: HYPOTHYROIDISM
  4. NEURONTIN [Concomitant]
     Active Substance: GABAPENTIN
     Indication: NEUROPATHY PERIPHERAL
  5. EFFEXOR [Concomitant]
     Active Substance: VENLAFAXINE HYDROCHLORIDE
     Indication: DEPRESSION
  6. FENTORA [Suspect]
     Active Substance: FENTANYL CITRATE
     Indication: COMPLEX REGIONAL PAIN SYNDROME
     Dosage: UP TO TWICE DAILY
     Route: 065
  7. KLONOPIN [Concomitant]
     Active Substance: CLONAZEPAM
     Indication: MUSCLE SPASMS
  8. ACETYLSALICYLIC ACID W/HYDROCODONE [Concomitant]
     Indication: PAIN

REACTIONS (2)
  - Product use in unapproved indication [Unknown]
  - Pain [Not Recovered/Not Resolved]

NARRATIVE: CASE EVENT DATE: 20180507
